FAERS Safety Report 5041374-0 (Version None)
Quarter: 2006Q2

REPORT INFORMATION
  Report Type: 
  Country: None (occurrence: None)
  Receive Date: 20060622
  Receipt Date: 20060613
  Transmission Date: 20061013
  Serious: Yes (Other)
  Sender: FDA-Public Use
  Company Number: 2006026885

PATIENT
  Sex: Male

DRUGS (2)
  1. GEODON [Suspect]
     Indication: ILL-DEFINED DISORDER
     Dosage: 160 MG (160 MG, 1 IN 1 D), ORAL
     Route: 048
  2. RISPERDAL [Concomitant]

REACTIONS (3)
  - BLOOD PROLACTIN INCREASED [None]
  - MENTAL DISORDER [None]
  - SUICIDE ATTEMPT [None]
